FAERS Safety Report 10062757 (Version 2)
Quarter: 2015Q2

REPORT INFORMATION
  Report Type: Spontaneous
  Country: US (occurrence: US)
  Receive Date: 20140407
  Receipt Date: 20150409
  Transmission Date: 20150821
  Serious: Yes (Death, Hospitalization, Other)
  Sender: FDA-Public Use
  Company Number: US-009507513-1404USA003567

PATIENT
  Sex: Male
  Weight: 61.22 kg

DRUGS (2)
  1. JANUVIA [Suspect]
     Active Substance: SITAGLIPTIN PHOSPHATE
     Indication: TYPE 2 DIABETES MELLITUS
     Dosage: 100 MG, QD
     Route: 048
     Dates: start: 20080410, end: 20090829
  2. JANUVIA [Suspect]
     Active Substance: SITAGLIPTIN PHOSPHATE
     Dosage: 100 MG, QD
     Route: 048
     Dates: start: 20100327, end: 20120906

REACTIONS (49)
  - Urinary tract disorder [Unknown]
  - Genital disorder male [Unknown]
  - Bile duct stenosis [Unknown]
  - Cholelithiasis [Unknown]
  - Adrenal mass [Unknown]
  - Arthritis [Unknown]
  - Benign prostatic hyperplasia [Unknown]
  - Peripheral swelling [Unknown]
  - Haemodynamic instability [Unknown]
  - Major depression [Unknown]
  - Spinal osteoarthritis [Unknown]
  - Hypertension [Unknown]
  - Large intestine polyp [Unknown]
  - Blood creatinine increased [Recovered/Resolved]
  - Pancreaticoduodenectomy [Recovered/Resolved]
  - Anaemia [Unknown]
  - Hyperkalaemia [Unknown]
  - Transurethral prostatectomy [Unknown]
  - Heart rate decreased [Unknown]
  - Dehydration [Unknown]
  - Nephrolithiasis [Unknown]
  - Chronic obstructive pulmonary disease [Not Recovered/Not Resolved]
  - Metastases to peritoneum [Unknown]
  - Coronary artery bypass [Unknown]
  - Chronic kidney disease [Not Recovered/Not Resolved]
  - Pneumoperitoneum [Unknown]
  - Metastases to liver [Unknown]
  - Cardio-respiratory arrest [Unknown]
  - Intervertebral disc operation [Unknown]
  - Hyperlipidaemia [Unknown]
  - Pancreatic carcinoma metastatic [Fatal]
  - Shock [Unknown]
  - Acute kidney injury [Unknown]
  - Bile duct stent insertion [Unknown]
  - Leukocytosis [Unknown]
  - Haemorrhage [Unknown]
  - Peritoneal haemorrhage [Unknown]
  - Lethargy [Unknown]
  - Arteriosclerosis coronary artery [Unknown]
  - Rheumatoid arthritis [Unknown]
  - Pulmonary mass [Unknown]
  - Ascites [Unknown]
  - Coagulopathy [Unknown]
  - Atrial fibrillation [Not Recovered/Not Resolved]
  - Cardiac failure congestive [Unknown]
  - Atrial fibrillation [Unknown]
  - Hypotension [Unknown]
  - Acute respiratory failure [Unknown]
  - Chromaturia [Unknown]

NARRATIVE: CASE EVENT DATE: 2008
